FAERS Safety Report 6341587-1 (Version None)
Quarter: 2009Q3

REPORT INFORMATION
  Report Type: 
  Country: None (occurrence: None)
  Receive Date: 20090904
  Receipt Date: 20090813
  Transmission Date: 20100115
  Serious: No
  Sender: FDA-Public Use
  Company Number: US-BAYER-200930728NA

PATIENT
  Age: 53 Year
  Sex: Female
  Weight: 104 kg

DRUGS (7)
  1. MAGNEVIST [Suspect]
     Indication: NUCLEAR MAGNETIC RESONANCE IMAGING
     Dosage: TOTAL DAILY DOSE: 20 ML  UNIT DOSE: 20 ML
     Route: 042
     Dates: start: 20090813, end: 20090813
  2. ZOCOR [Concomitant]
  3. VASOTEC [Concomitant]
  4. SYNTHROID [Concomitant]
  5. LOPRESSOR [Concomitant]
  6. EFFEXOR [Concomitant]
  7. ASPIRIN [Concomitant]

REACTIONS (1)
  - URTICARIA [None]
